FAERS Safety Report 13749085 (Version 1)
Quarter: 2017Q3

REPORT INFORMATION
  Report Type: Spontaneous
  Country: US (occurrence: US)
  Receive Date: 20170713
  Receipt Date: 20170713
  Transmission Date: 20171127
  Serious: Yes (Hospitalization)
  Sender: FDA-Public Use
  Company Number: None

PATIENT
  Age: 60 Year
  Sex: Female
  Weight: 44.1 kg

DRUGS (9)
  1. CAMPTOSAR [Suspect]
     Active Substance: IRINOTECAN HYDROCHLORIDE
     Dates: end: 20170620
  2. LISINOPRIL. [Concomitant]
     Active Substance: LISINOPRIL
  3. ZOFRAN [Concomitant]
     Active Substance: ONDANSETRON HYDROCHLORIDE
  4. 5-FLUOROURACIL (5-FU) (19893) [Suspect]
     Active Substance: FLUOROURACIL
     Dates: end: 20170620
  5. ELOXATIN [Suspect]
     Active Substance: OXALIPLATIN
     Dates: end: 20170620
  6. LEUCOVORIN CALCIUM. [Suspect]
     Active Substance: LEUCOVORIN CALCIUM
     Dates: end: 20170620
  7. ATORVASTATIN [Concomitant]
     Active Substance: ATORVASTATIN
  8. IMODIUM AD [Concomitant]
     Active Substance: LOPERAMIDE HYDROCHLORIDE
  9. METFORMIN [Concomitant]
     Active Substance: METFORMIN HYDROCHLORIDE

REACTIONS (11)
  - Blood lactic acid increased [None]
  - Pyrexia [None]
  - Tachycardia [None]
  - Chills [None]
  - Chromaturia [None]
  - Liver function test increased [None]
  - White blood cell count increased [None]
  - Neutrophil count increased [None]
  - Abdominal pain upper [None]
  - Hypertension [None]
  - Abdominal pain lower [None]

NARRATIVE: CASE EVENT DATE: 20170704
